FAERS Safety Report 14019789 (Version 1)
Quarter: 2017Q3

REPORT INFORMATION
  Report Type: Spontaneous
  Country: JP (occurrence: JP)
  Receive Date: 20170928
  Receipt Date: 20170928
  Transmission Date: 20171128
  Serious: Yes (Other)
  Sender: FDA-Public Use
  Company Number: JP-FRESENIUS KABI-FK201707997

PATIENT
  Sex: Female

DRUGS (4)
  1. CAFFEINE CITRATE (MANUFACTURER UNKNOWN) (CAFFEINE CITRATE) (CAFFEINE CITRATE) [Suspect]
     Active Substance: CAFFEINE CITRATE
     Route: 065
  2. CAFFEINE CITRATE (MANUFACTURER UNKNOWN) (CAFFEINE CITRATE) (CAFFEINE CITRATE) [Suspect]
     Active Substance: CAFFEINE CITRATE
     Route: 065
  3. CAFFEINE CITRATE (MANUFACTURER UNKNOWN) (CAFFEINE CITRATE) (CAFFEINE CITRATE) [Suspect]
     Active Substance: CAFFEINE CITRATE
     Route: 065
  4. CAFFEINE CITRATE (MANUFACTURER UNKNOWN) (CAFFEINE CITRATE) (CAFFEINE CITRATE) [Suspect]
     Active Substance: CAFFEINE CITRATE
     Indication: INFANTILE APNOEA
     Route: 065

REACTIONS (3)
  - Tachycardia [Recovered/Resolved]
  - Rhabdomyolysis [Recovered/Resolved]
  - Toxicity to various agents [Recovered/Resolved]
